FAERS Safety Report 15860258 (Version 1)
Quarter: 2019Q1

REPORT INFORMATION
  Report Type: Spontaneous
  Country: GB (occurrence: GB)
  Receive Date: 20190123
  Receipt Date: 20190123
  Transmission Date: 20190417
  Serious: Yes (Hospitalization, Other)
  Sender: FDA-Public Use
  Company Number: GB-ALLERGAN-1902763US

PATIENT
  Age: 58 Year
  Sex: Male

DRUGS (5)
  1. CITALOPRAM HYDROBROMIDE - BP [Suspect]
     Active Substance: CITALOPRAM HYDROBROMIDE
     Indication: PRODUCT USED FOR UNKNOWN INDICATION
     Dosage: UNK
     Route: 065
  2. VENLAFAXINE [Suspect]
     Active Substance: VENLAFAXINE HYDROCHLORIDE
     Indication: PRODUCT USED FOR UNKNOWN INDICATION
     Dosage: UNK
     Route: 065
     Dates: end: 201809
  3. RISPERIDONE. [Suspect]
     Active Substance: RISPERIDONE
     Indication: PRODUCT USED FOR UNKNOWN INDICATION
     Dosage: UNK
     Route: 065
  4. DIAZEPAM. [Concomitant]
     Active Substance: DIAZEPAM
     Dosage: UNK
     Route: 065
  5. ZOLPIDEM [Concomitant]
     Active Substance: ZOLPIDEM\ZOLPIDEM TARTRATE
     Dosage: UNK
     Route: 065

REACTIONS (19)
  - Hangover [Recovered/Resolved]
  - Withdrawal syndrome [Recovered/Resolved]
  - Motion sickness [Recovered/Resolved]
  - Visual impairment [Unknown]
  - Photophobia [Unknown]
  - Sexual dysfunction [Unknown]
  - Asthenia [Unknown]
  - Insomnia [Unknown]
  - Vertigo [Recovered/Resolved]
  - Mental disorder [Unknown]
  - Nausea [Unknown]
  - Headache [Recovered/Resolved]
  - Hypertonic bladder [Unknown]
  - Cerebral disorder [Unknown]
  - Hyperhidrosis [Unknown]
  - Dizziness [Unknown]
  - Feeling abnormal [Unknown]
  - Dyspnoea [Unknown]
  - Hypoaesthesia [Unknown]

NARRATIVE: CASE EVENT DATE: 2018
